FAERS Safety Report 8183678-9 (Version None)
Quarter: 2012Q1

REPORT INFORMATION
  Report Type: 
  Country: None (occurrence: None)
  Receive Date: 20120305
  Receipt Date: 20120227
  Transmission Date: 20120608
  Serious: Yes (Life-Threatening, Hospitalization, Other)
  Sender: FDA-Public Use
  Company Number: PHHO2010IE03795

PATIENT
  Sex: Male
  Weight: 104 kg

DRUGS (25)
  1. BLINDED ALISKIREN [Suspect]
     Indication: CARDIAC FAILURE
     Dosage: CODE NOT BROKEN
     Route: 048
     Dates: start: 20091209, end: 20100303
  2. PERINDOPRIL [Concomitant]
     Indication: CARDIAC FAILURE
  3. SIMVASTATIN [Concomitant]
     Indication: MYOCARDIAL ISCHAEMIA
     Dosage: 20 MG, QD
  4. PANTOPRAZOLE [Concomitant]
     Indication: DYSPEPSIA
     Dosage: 40 MG, QD
     Dates: start: 20100101
  5. BLINDED ALISKIREN [Suspect]
     Dosage: CODE NOT BROKEN
     Route: 048
     Dates: start: 20101215, end: 20110224
  6. ENALAPRIL MALEATE [Suspect]
     Dosage: CODE NOT BROKEN
     Route: 048
     Dates: start: 20101215, end: 20110224
  7. BLINDED ALISKIREN [Suspect]
     Dosage: CODE NOT BROKEN
     Dates: end: 20120202
  8. METOPROLOL SUCCINATE [Suspect]
  9. ISOSORBIDE DINITRATE [Suspect]
     Dosage: UNK
     Dates: start: 20110224, end: 20110225
  10. FUROSEMIDE [Concomitant]
     Indication: CARDIAC FAILURE
     Dosage: 20 MG, QD
  11. ASPIRIN [Concomitant]
     Indication: MYOCARDIAL ISCHAEMIA
     Dosage: 75 MG, QD
  12. BLINDED NO TREATMENT RECEIVED [Suspect]
     Dosage: CODE NOT BROKEN
     Route: 048
     Dates: start: 20101215, end: 20110224
  13. ENALAPRIL MALEATE [Suspect]
     Dosage: CODE NOT BROKEN
     Dates: end: 20120202
  14. ALISKIREN [Suspect]
     Indication: CARDIAC FAILURE
     Dosage: CODE NOT BROKEN
     Dates: start: 20110810, end: 20110817
  15. ENALAPRIL MALEATE [Suspect]
     Indication: CARDIAC FAILURE
     Dosage: CODE NOT BROKEN
     Dates: start: 20110810, end: 20110817
  16. ENALAPRIL MALEATE [Suspect]
     Dosage: CODE NOT BROKEN
     Dates: start: 20110817
  17. BISOPROLOL FUMARATE [Concomitant]
     Indication: CARDIAC FAILURE
     Dosage: 2.5 MG, QD
  18. BISOPROLOL FUMARATE [Concomitant]
     Indication: MYOCARDIAL ISCHAEMIA
     Dosage: 3.75 MG, QD
  19. ENALAPRIL MALEATE [Suspect]
     Indication: CARDIAC FAILURE
     Dosage: CODE NOT BROKEN
     Route: 048
     Dates: start: 20091209, end: 20100303
  20. BLINDED NO TREATMENT RECEIVED [Suspect]
     Dosage: CODE NOT BROKEN
     Dates: end: 20120202
  21. BLINDED NO TREATMENT RECEIVED [Suspect]
     Indication: CARDIAC FAILURE
     Dosage: CODE NOT BROKEN
     Route: 048
     Dates: start: 20091209, end: 20100303
  22. DIGOXIN [Concomitant]
  23. NSA [Concomitant]
  24. QUININE SULFATE [Concomitant]
  25. CLOPIDOGREL [Concomitant]
     Indication: MYOCARDIAL ISCHAEMIA
     Dosage: 75 MG, QD
     Dates: start: 20100101

REACTIONS (12)
  - CHEST PAIN [None]
  - ASTHENIA [None]
  - LOWER RESPIRATORY TRACT INFECTION [None]
  - CARDIAC FAILURE [None]
  - TACHYCARDIA [None]
  - PULMONARY OEDEMA [None]
  - ACUTE MYOCARDIAL INFARCTION [None]
  - DYSPNOEA [None]
  - DISEASE PROGRESSION [None]
  - DIZZINESS [None]
  - HYPOTENSION [None]
  - CONCOMITANT DISEASE PROGRESSION [None]
